FAERS Safety Report 8798652 (Version 1)
Quarter: 2012Q4

REPORT INFORMATION
  Report Type: 
  Country: US (occurrence: US)
  Receive Date: 20120917
  Receipt Date: 20120917
  Transmission Date: 20130627
  Serious: No
  Sender: FDA-Public Use
  Company Number: US-BAYER-2012-096469

PATIENT

DRUGS (1)
  1. ULTRAVIST [Suspect]
     Dosage: UNK

REACTIONS (2)
  - Cough [None]
  - Dyspnoea [None]
